FAERS Safety Report 22353816 (Version 2)
Quarter: 2023Q2

REPORT INFORMATION
  Report Type: Spontaneous
  Country: JP (occurrence: JP)
  Receive Date: 20230523
  Receipt Date: 20230531
  Transmission Date: 20230722
  Serious: No
  Sender: FDA-Public Use
  Company Number: JP-ASTELLAS-2023JP005734

PATIENT
  Age: 70 Year
  Sex: Female

DRUGS (1)
  1. VESICARE [Suspect]
     Active Substance: SOLIFENACIN SUCCINATE
     Indication: Hypertonic bladder
     Dosage: 5 MG, ONCE DAILY, ADMINISTERED BEFORE BEDTIME
     Route: 048
     Dates: start: 20230421

REACTIONS (1)
  - Micturition urgency [Unknown]
